FAERS Safety Report 7378889-6 (Version None)
Quarter: 2011Q1

REPORT INFORMATION
  Report Type: 
  Country: None (occurrence: None)
  Receive Date: 20110328
  Receipt Date: 20110323
  Transmission Date: 20110831
  Serious: Yes (Death, Other)
  Sender: FDA-Public Use
  Company Number: PHHY2011AT24039

PATIENT
  Age: 70 Year
  Sex: Female
  Weight: 55 kg

DRUGS (14)
  1. SYMBIOCORT [Concomitant]
     Dosage: 2-0-2
  2. DIBONDRIN [Concomitant]
     Dosage: 0-0-2-0
  3. LASIX [Concomitant]
     Dosage: 40 MG ON DEMAND
  4. AQUAPHORIL [Concomitant]
  5. ADJUVIN [Concomitant]
  6. NSAR [Concomitant]
     Dosage: ON DEMAND
  7. EXFORGE HCT [Suspect]
     Dosage: 160 MG VALS, 10 MG AMLO AND 12.5 MG HYDR
  8. AVELOX [Concomitant]
     Dosage: 1-0-0
  9. PREDNISOLONE [Concomitant]
     Dosage: 1-0-0
  10. MUCOBENE [Concomitant]
     Dosage: 1-0-1
  11. DOMINAL FORTE [Concomitant]
     Dosage: 0-0-0-1
  12. DILATREND [Concomitant]
  13. FURADANTIN [Concomitant]
     Dosage: UP TO 240 MG
  14. RILMENIDINE [Concomitant]

REACTIONS (3)
  - DRUG INEFFECTIVE [None]
  - RENAL FAILURE [None]
  - HYPERTENSION [None]
